FAERS Safety Report 9345063 (Version 1)
Quarter: 2013Q2

REPORT INFORMATION
  Report Type: Spontaneous
  Country: BR (occurrence: BR)
  Receive Date: 20130612
  Receipt Date: 20130612
  Transmission Date: 20140414
  Serious: Yes (Other)
  Sender: FDA-Public Use
  Company Number: BR-PFIZER INC-2013172497

PATIENT
  Age: 70 Year
  Sex: Male

DRUGS (16)
  1. LIPITOR [Suspect]
     Indication: BLOOD CHOLESTEROL INCREASED
     Dosage: 20 MG, 1X/DAY
     Route: 048
     Dates: start: 19930607
  2. ATENOLOL [Concomitant]
     Indication: HYPERTENSION
     Dosage: 25 MG, UNK
     Dates: start: 1983
  3. ENALAPRIL [Concomitant]
     Indication: HYPERTENSION
     Dosage: UNK
     Dates: start: 2013
  4. ASPIRINA PREVENT [Concomitant]
     Indication: ANTICOAGULANT THERAPY
     Dosage: 10, UNK
     Dates: start: 1983
  5. LIPANON [Concomitant]
     Dosage: UNK
     Dates: start: 2009
  6. METFORMIN [Concomitant]
     Indication: DIABETES MELLITUS
     Dosage: 500, UNK
     Dates: start: 1983
  7. OLCADIL [Concomitant]
     Indication: DEPRESSION
     Dosage: 1, UNK
     Dates: start: 201212
  8. SUSTRATE [Concomitant]
     Indication: ANGINA PECTORIS
     Dosage: UNK
     Dates: start: 1993
  9. TIMOPTOL [Concomitant]
     Dosage: UNK
     Dates: start: 201301
  10. VASTAREL [Concomitant]
     Dosage: UNK
     Dates: start: 201301
  11. ENALABAL [Concomitant]
     Indication: HYPERTENSION
     Dosage: UNK
  12. GLIBENCLAMIDE [Concomitant]
     Indication: DIABETES MELLITUS
     Dosage: 5 MG, UNK
  13. PLAVIX [Concomitant]
     Dosage: 40, UNK
  14. ROXFLAN [Concomitant]
     Dosage: 5 MG, UNK
  15. TRILEPTAL [Concomitant]
     Indication: DEPRESSION
     Dosage: 300 MG, UNK
  16. VASTAREL MR [Concomitant]
     Dosage: UNK

REACTIONS (3)
  - Cardiac disorder [Unknown]
  - Diarrhoea [Not Recovered/Not Resolved]
  - Drug ineffective [Not Recovered/Not Resolved]
